FAERS Safety Report 19788292 (Version 7)
Quarter: 2022Q4

REPORT INFORMATION
  Report Type: Report from Study
  Country: CL (occurrence: CL)
  Receive Date: 20210903
  Receipt Date: 20221027
  Transmission Date: 20230113
  Serious: Yes (Hospitalization, Other)
  Sender: FDA-Public Use
  Company Number: CL-BRISTOL-MYERS SQUIBB COMPANY-BMS-2021-088339

PATIENT
  Age: 56 Year
  Sex: Female
  Weight: 72.5 kg

DRUGS (10)
  1. CABOZANTINIB [Suspect]
     Active Substance: CABOZANTINIB
     Indication: Renal cell carcinoma
     Dosage: FROM 18-FEB-2020 TO 13-MAY-2020.?ON 17-JUN-2020, BLINDED STUDY TREATMENT WAS REDUCED TO 20 MG QOD DU
     Route: 048
     Dates: start: 20200218
  2. IPILIMUMAB [Suspect]
     Active Substance: IPILIMUMAB
     Indication: Renal cell carcinoma
     Dosage: 4 DOSES,?ON 11-MAR-2020, (TO BE CONFIRMED), THE PATIENT RECEIVED THE MOST RECENT DOSE OF IPILIMUMAB
     Route: 042
     Dates: start: 20200218, end: 20200311
  3. LEVOTHYROXINE SODIUM [Concomitant]
     Active Substance: LEVOTHYROXINE SODIUM
     Indication: Product used for unknown indication
     Dosage: UNK
     Route: 065
  4. LEVOTHYROXINE SODIUM [Concomitant]
     Active Substance: LEVOTHYROXINE SODIUM
  5. LEVOTHYROXINE SODIUM [Concomitant]
     Active Substance: LEVOTHYROXINE SODIUM
  6. PREGABALIN [Concomitant]
     Active Substance: PREGABALIN
     Indication: Product used for unknown indication
     Dosage: UNK
     Route: 065
  7. PREGABALIN [Concomitant]
     Active Substance: PREGABALIN
  8. PREGABALIN [Concomitant]
     Active Substance: PREGABALIN
  9. OMEPRAZOLE SODIUM [Concomitant]
     Active Substance: OMEPRAZOLE SODIUM
     Indication: Product used for unknown indication
     Dosage: UNK
     Route: 065
  10. PREDNISONE ACETATE [Concomitant]
     Active Substance: PREDNISONE ACETATE
     Indication: Product used for unknown indication
     Dosage: UNK
     Route: 065

REACTIONS (1)
  - Protein-losing gastroenteropathy [Recovered/Resolved]

NARRATIVE: CASE EVENT DATE: 20210827
